FAERS Safety Report 5161626-3 (Version None)
Quarter: 2006Q4

REPORT INFORMATION
  Report Type: 
  Country: None (occurrence: None)
  Receive Date: 20061130
  Receipt Date: 20061127
  Transmission Date: 20070319
  Serious: Yes (Hospitalization)
  Sender: FDA-Public Use
  Company Number: GB-AVENTIS-200622038GDDC

PATIENT
  Age: 77 Year
  Sex: Female

DRUGS (11)
  1. GLYBURIDE [Suspect]
  2. BLINDED BEVACIZUMAB [Suspect]
     Indication: BREAST CANCER METASTATIC
     Route: 042
     Dates: start: 20061007
  3. PACLITAXEL [Suspect]
     Indication: BREAST CANCER METASTATIC
  4. INFLUENZA VIRUS VACCINE [Concomitant]
  5. TYLENOL [Concomitant]
  6. AMBIEN [Concomitant]
  7. SYNTHROID [Concomitant]
  8. ACTOS [Concomitant]
  9. ATENOLOL [Concomitant]
  10. AVAPRO [Concomitant]
  11. ATIVAN [Concomitant]

REACTIONS (4)
  - HAEMATOCRIT DECREASED [None]
  - HAEMOGLOBIN DECREASED [None]
  - NEUTROPENIC INFECTION [None]
  - STREPTOCOCCAL INFECTION [None]
